FAERS Safety Report 17535888 (Version 2)
Quarter: 2020Q1

REPORT INFORMATION
  Report Type: Spontaneous
  Country: US (occurrence: US)
  Receive Date: 20200313
  Receipt Date: 20200316
  Transmission Date: 20200409
  Serious: Yes (Other)
  Sender: FDA-Public Use
  Company Number: US-SA-2020SA060828

PATIENT
  Sex: Female

DRUGS (1)
  1. ZANTAC [Suspect]
     Active Substance: RANITIDINE HYDROCHLORIDE
     Dosage: 5-7 TIMES A WEEK ALMOST DAILY FOR 18 YEARS
     Dates: start: 2002, end: 201909

REACTIONS (5)
  - Emotional distress [Not Recovered/Not Resolved]
  - Pain [Unknown]
  - Cholelithiasis [Unknown]
  - Renal cancer [Unknown]
  - Anxiety [Unknown]

NARRATIVE: CASE EVENT DATE: 2018
